FAERS Safety Report 6639743-8 (Version None)
Quarter: 2010Q1

REPORT INFORMATION
  Report Type: 
  Country: None (occurrence: None)
  Receive Date: 20100318
  Receipt Date: 20100308
  Transmission Date: 20100710
  Serious: Yes (Hospitalization, Other)
  Sender: FDA-Public Use
  Company Number: PHHY2009BR55134

PATIENT
  Sex: Male

DRUGS (9)
  1. DIOVAN [Suspect]
     Indication: HYPERTENSION
     Dosage: 1 TABLET (80 MG) DAILY
     Route: 048
     Dates: start: 20090501
  2. PURAN T4 [Concomitant]
     Indication: HYPOTHYROIDISM
     Dosage: 100 UG, DAILY
     Route: 048
  3. MONOCORDIL [Concomitant]
     Indication: BLOOD DISORDER
     Dosage: 2 DF, DAILY
     Route: 048
  4. ANCORON [Concomitant]
     Indication: BLOOD DISORDER
     Dosage: 100 MG, DAILY
     Route: 048
  5. ALLOPURINOL [Concomitant]
     Dosage: 100 MG, DAILY
     Route: 048
  6. LIPITOR [Concomitant]
     Indication: BLOOD CHOLESTEROL INCREASED
     Dosage: 20 MG, DAILY
     Route: 048
  7. PLAVIX [Concomitant]
     Indication: BLOOD DISORDER
     Dosage: 75 MG, DAILY
     Route: 048
  8. LASIX [Concomitant]
     Indication: HYPERTENSION
     Dosage: 40 MG, DAILY
     Route: 048
  9. LEXAPRO [Concomitant]
     Indication: DEPRESSION
     Dosage: 20 MG, DAILY
     Route: 048

REACTIONS (6)
  - ANAEMIA [None]
  - CARDIAC OPERATION [None]
  - CATHETERISATION CARDIAC [None]
  - CORONARY REVASCULARISATION [None]
  - HAEMODIALYSIS [None]
  - RENAL FAILURE ACUTE [None]
